FAERS Safety Report 4774227-3 (Version None)
Quarter: 2005Q3

REPORT INFORMATION
  Report Type: 
  Country: None (occurrence: None)
  Receive Date: 20050914
  Receipt Date: 20041124
  Transmission Date: 20060218
  Serious: Yes (Death)
  Sender: FDA-Public Use
  Company Number: 163-20785-04110617

PATIENT
  Age: 80 Year
  Sex: Male

DRUGS (1)
  1. THALOMID [Suspect]
     Indication: PROSTATE CANCER
     Dosage: 100 MG, DAILY, ORAL
     Route: 048
     Dates: start: 20040427, end: 20040618

REACTIONS (2)
  - DEATH [None]
  - DISEASE PROGRESSION [None]
